FAERS Safety Report 16094948 (Version 1)
Quarter: 2019Q2

REPORT INFORMATION
  Report Type: Spontaneous
  Country: US (occurrence: US)
  Receive Date: 20190320
  Receipt Date: 20190320
  Transmission Date: 20190711
  Serious: Yes (Hospitalization, Disabling)
  Sender: FDA-Public Use
  Company Number: None

PATIENT
  Age: 22 Year
  Sex: Female
  Weight: 67.5 kg

DRUGS (6)
  1. DULOZATINE [Concomitant]
  2. SULFAMETHOXAZOLE - TMP DS TABLET SULFAMETHOXAZOLE/TRIMETHOPRIM, ORAL [Suspect]
     Active Substance: SULFAMETHOXAZOLE\TRIMETHOPRIM
     Indication: ANTIBIOTIC THERAPY
     Dosage: ?          QUANTITY:20 CAPSULE(S);?
     Route: 048
     Dates: start: 20181026, end: 20181105
  3. VITAMIN B12 [Concomitant]
     Active Substance: CYANOCOBALAMIN
  4. GABAPENTIN. [Concomitant]
     Active Substance: GABAPENTIN
  5. MELATONIN [Concomitant]
     Active Substance: MELATONIN
  6. ATENALOL [Concomitant]

REACTIONS (6)
  - Pain in jaw [None]
  - Neck pain [None]
  - Pain in extremity [None]
  - Headache [None]
  - Guillain-Barre syndrome [None]
  - Toothache [None]

NARRATIVE: CASE EVENT DATE: 20181031
